FAERS Safety Report 12970003 (Version 2)
Quarter: 2022Q1

REPORT INFORMATION
  Report Type: Report from Study
  Country: US (occurrence: US)
  Receive Date: 20161123
  Receipt Date: 20220301
  Transmission Date: 20220423
  Serious: Yes (Other)
  Sender: FDA-Public Use
  Company Number: US-TAKEDA-TPA2011A00762

PATIENT
  Age: 79 Year
  Sex: Male
  Weight: 72.574 kg

DRUGS (5)
  1. DEXLANSOPRAZOLE [Suspect]
     Active Substance: DEXLANSOPRAZOLE
     Indication: Impaired gastric emptying
     Dosage: 60 MILLIGRAM, QD
     Route: 048
     Dates: start: 20101221
  2. DEXLANSOPRAZOLE [Suspect]
     Active Substance: DEXLANSOPRAZOLE
     Indication: Abdominal pain upper
     Dosage: 60 MILLIGRAM, QD
     Route: 048
     Dates: start: 2014
  3. DEXLANSOPRAZOLE [Suspect]
     Active Substance: DEXLANSOPRAZOLE
     Indication: Chronic gastritis
     Dosage: 60 MILLIGRAM, QD
     Route: 048
     Dates: start: 20171114
  4. SUCRALFATE [Suspect]
     Active Substance: SUCRALFATE
     Indication: Abdominal pain upper
     Dosage: UNK, QD
     Route: 048
  5. CARAFATE [Concomitant]
     Active Substance: SUCRALFATE
     Indication: Abdominal pain upper
     Dosage: UNK
     Route: 048
     Dates: start: 20110121

REACTIONS (11)
  - Illness [Recovered/Resolved]
  - Abdominal discomfort [Recovered/Resolved]
  - Skin reaction [Recovered/Resolved]
  - Abdominal pain upper [Not Recovered/Not Resolved]
  - Condition aggravated [Not Recovered/Not Resolved]
  - Off label use [Not Recovered/Not Resolved]
  - Therapy interrupted [Recovered/Resolved]
  - Fall [Unknown]
  - Dizziness [Recovered/Resolved]
  - Anxiety [Recovered/Resolved]
  - Nausea [Not Recovered/Not Resolved]

NARRATIVE: CASE EVENT DATE: 20161115
